FAERS Safety Report 12606123 (Version 1)
Quarter: 2016Q3

REPORT INFORMATION
  Report Type: Spontaneous
  Country: US (occurrence: US)
  Receive Date: 20160729
  Receipt Date: 20160729
  Transmission Date: 20161109
  Serious: No
  Sender: FDA-Public Use
  Company Number: US-PFIZER INC-2016363611

PATIENT
  Age: 73 Year
  Sex: Female
  Weight: 58.96 kg

DRUGS (1)
  1. DEMEROL [Suspect]
     Active Substance: MEPERIDINE HYDROCHLORIDE
     Indication: LABOUR PAIN
     Dosage: TWO TIMES
     Route: 042

REACTIONS (1)
  - Vomiting [Recovered/Resolved]
